FAERS Safety Report 9494269 (Version 2)
Quarter: 2013Q3

REPORT INFORMATION
  Report Type: Spontaneous
  Country: US (occurrence: None)
  Receive Date: 20130828
  Receipt Date: 20130911
  Transmission Date: 20140515
  Serious: Yes (Hospitalization)
  Sender: FDA-Public Use
  Company Number: 2013US002345

PATIENT
  Age: 71 Year
  Sex: Female
  Weight: 64 kg

DRUGS (1)
  1. PONATINIB [Suspect]
     Indication: GASTROINTESTINAL STROMAL TUMOUR
     Route: 048
     Dates: start: 20130812

REACTIONS (10)
  - Hypothyroidism [None]
  - Pleuritic pain [None]
  - Dyspnoea [None]
  - Fatigue [None]
  - Abdominal pain [None]
  - Abdominal pain upper [None]
  - Sciatica [None]
  - Myalgia [None]
  - Decreased appetite [None]
  - Constipation [None]
